FAERS Safety Report 7510774-9 (Version None)
Quarter: 2011Q2

REPORT INFORMATION
  Report Type: 
  Country: None (occurrence: None)
  Receive Date: 20110530
  Receipt Date: 20070119
  Transmission Date: 20111010
  Serious: Yes (Death)
  Sender: FDA-Public Use
  Company Number: PHHO2007NZ01481

PATIENT
  Sex: Female

DRUGS (8)
  1. LACTULOSE [Concomitant]
  2. DIAZEPAM [Concomitant]
  3. CLOZARIL [Suspect]
     Indication: SCHIZOPHRENIA
     Dosage: 25MG MANE AND 75MG NOCTE
     Dates: start: 20030618
  4. ISOGEL [Concomitant]
  5. DULCOLAX [Concomitant]
  6. COLOXYL [Concomitant]
  7. ZOPICLONE [Concomitant]
  8. ACETAMINOPHEN [Concomitant]

REACTIONS (1)
  - DEATH [None]
